FAERS Safety Report 22330554 (Version 1)
Quarter: 2023Q2

REPORT INFORMATION
  Report Type: Spontaneous
  Country: US (occurrence: None)
  Receive Date: 20230517
  Receipt Date: 20230517
  Transmission Date: 20230722
  Serious: No
  Sender: FDA-Public Use
  Company Number: US-ROCHE-3077520

PATIENT
  Age: 51 Year
  Sex: Female
  Weight: 72.64 kg

DRUGS (4)
  1. ACTEMRA [Suspect]
     Active Substance: TOCILIZUMAB
     Indication: Rheumatoid arthritis
     Dosage: 162 MG/0.9 ML
     Route: 058
     Dates: start: 202112, end: 20220406
  2. ACTEMRA [Suspect]
     Active Substance: TOCILIZUMAB
  3. ACTEMRA [Suspect]
     Active Substance: TOCILIZUMAB
     Route: 058
     Dates: start: 20220115
  4. ACTEMRA [Suspect]
     Active Substance: TOCILIZUMAB

REACTIONS (6)
  - Drug ineffective [Unknown]
  - Product dose omission issue [Unknown]
  - Pain [Not Recovered/Not Resolved]
  - Musculoskeletal stiffness [Unknown]
  - Peripheral swelling [Unknown]
  - Drug delivery system malfunction [Unknown]

NARRATIVE: CASE EVENT DATE: 20211201
